FAERS Safety Report 5693030-3 (Version None)
Quarter: 2008Q2

REPORT INFORMATION
  Report Type: 
  Country: None (occurrence: None)
  Receive Date: 20080401
  Receipt Date: 20080401
  Transmission Date: 20081010
  Serious: Yes (Life-Threatening, Hospitalization)
  Sender: FDA-Public Use
  Company Number: None

PATIENT
  Age: 35 Year
  Sex: Female
  Weight: 117.9352 kg

DRUGS (2)
  1. SINGULAIR [Suspect]
     Indication: ASTHMA
     Dosage: 1 TABLET EACH EVENING PO
     Route: 048
     Dates: start: 20040401, end: 20040701
  2. SINGULAIR [Suspect]
     Indication: HYPERSENSITIVITY
     Dosage: 1 TABLET EACH EVENING PO
     Route: 048
     Dates: start: 20040401, end: 20040701

REACTIONS (3)
  - DEPRESSION [None]
  - MOOD SWINGS [None]
  - SUICIDE ATTEMPT [None]
